FAERS Safety Report 6868875-4 (Version None)
Quarter: 2010Q3

REPORT INFORMATION
  Report Type: 
  Country: None (occurrence: None)
  Receive Date: 20100722
  Receipt Date: 20080707
  Transmission Date: 20110219
  Serious: Yes (Other)
  Sender: FDA-Public Use
  Company Number: US-PFIZER INC-2008052363

PATIENT
  Sex: Female
  Weight: 86.4 kg

DRUGS (2)
  1. CHANTIX [Suspect]
     Indication: SMOKING CESSATION THERAPY
     Dates: start: 20070101, end: 20080101
  2. LISINOPRIL [Concomitant]

REACTIONS (4)
  - ASTHENOPIA [None]
  - HEADACHE [None]
  - MEMORY IMPAIRMENT [None]
  - VISUAL IMPAIRMENT [None]
